FAERS Safety Report 19624496 (Version 1)
Quarter: 2021Q3

REPORT INFORMATION
  Report Type: Spontaneous
  Country: DE (occurrence: DE)
  Receive Date: 20210729
  Receipt Date: 20210729
  Transmission Date: 20211014
  Serious: Yes (Hospitalization, Other)
  Sender: FDA-Public Use
  Company Number: DE-CELLTRION INC.-2021DE009838

PATIENT

DRUGS (2)
  1. TOCILIZUMAB. [Suspect]
     Active Substance: TOCILIZUMAB
     Indication: CASTLEMAN^S DISEASE
     Dosage: UNK (FIRST?LINE TREATMENT)
     Route: 065
  2. RITUXIMAB (UNKNOWN) [Suspect]
     Active Substance: RITUXIMAB
     Indication: CASTLEMAN^S DISEASE
     Dosage: UNK (FIRST?LINE THERAPY)
     Route: 065

REACTIONS (5)
  - Castleman^s disease [Unknown]
  - Product use in unapproved indication [Unknown]
  - Off label use [Unknown]
  - Cytokine release syndrome [Unknown]
  - Disease recurrence [Unknown]

NARRATIVE: CASE EVENT DATE: 2019
